FAERS Safety Report 25169996 (Version 1)
Quarter: 2025Q2

REPORT INFORMATION
  Report Type: Spontaneous
  Country: US (occurrence: US)
  Receive Date: 20250407
  Receipt Date: 20250407
  Transmission Date: 20250717
  Serious: Yes (Hospitalization)
  Sender: MERCK SHARP AND DOHME
  Company Number: US-009507513-2270047

PATIENT
  Age: 58 Year
  Sex: Female

DRUGS (14)
  1. PEMBROLIZUMAB [Suspect]
     Active Substance: PEMBROLIZUMAB
     Indication: Endometrial cancer
     Route: 042
     Dates: start: 20231020, end: 202405
  2. PEMBROLIZUMAB [Suspect]
     Active Substance: PEMBROLIZUMAB
     Indication: Endometrial cancer
     Route: 042
     Dates: end: 2025
  3. LENVATINIB [Suspect]
     Active Substance: LENVATINIB
     Indication: Endometrial cancer
     Route: 048
     Dates: start: 20250225, end: 202503
  4. XARELTO [Concomitant]
     Active Substance: RIVAROXABAN
     Route: 048
  5. BENADRYL [Concomitant]
     Active Substance: DIPHENHYDRAMINE HYDROCHLORIDE
     Route: 042
  6. EPINEPHRINE [Concomitant]
     Active Substance: EPINEPHRINE
     Route: 042
  7. INSULIN NOVOLOG ASPART [Concomitant]
     Route: 058
  8. LEVOTHYROXINE [Concomitant]
     Active Substance: LEVOTHYROXINE
     Route: 048
  9. LONOX [Concomitant]
     Active Substance: ATROPINE SULFATE\DIPHENOXYLATE HYDROCHLORIDE
     Route: 048
  10. PANTOPRAZOLE [Concomitant]
     Active Substance: PANTOPRAZOLE
     Route: 048
  11. PEPCID [Concomitant]
     Active Substance: FAMOTIDINE
     Dosage: DOSAGE: 10 UMOL/MG
     Route: 048
  12. SODIUM CHLORIDE [Concomitant]
     Active Substance: SODIUM CHLORIDE
     Route: 040
  13. SOLU-MEDROL [Concomitant]
     Active Substance: METHYLPREDNISOLONE SODIUM SUCCINATE
     Route: 042
  14. TYLENOL [Concomitant]
     Active Substance: ACETAMINOPHEN
     Route: 048

REACTIONS (1)
  - Encephalitis [Recovering/Resolving]

NARRATIVE: CASE EVENT DATE: 20250308
